FAERS Safety Report 5691795-8 (Version None)
Quarter: 2008Q2

REPORT INFORMATION
  Report Type: 
  Country: None (occurrence: None)
  Receive Date: 20080402
  Receipt Date: 20080327
  Transmission Date: 20081010
  Serious: Yes (Other)
  Sender: FDA-Public Use
  Company Number: GB-ROCHE-550022

PATIENT
  Sex: Female

DRUGS (2)
  1. XENICAL [Suspect]
     Indication: WEIGHT CONTROL
     Dosage: TOOK ALL THREE TABLETS AT NIGHT
     Route: 065
  2. LEVETIRACETAM [Concomitant]
     Indication: CONVULSION PROPHYLAXIS

REACTIONS (1)
  - EPILEPSY [None]
